FAERS Safety Report 17916932 (Version 1)
Quarter: 2020Q2

REPORT INFORMATION
  Report Type: Spontaneous
  Country: CA (occurrence: CA)
  Receive Date: 20200619
  Receipt Date: 20200619
  Transmission Date: 20200714
  Serious: Yes (Death, Other)
  Sender: FDA-Public Use
  Company Number: CA-CHEPLA-MYERS SQUIBB COMPANY-BMS-2019-025151

PATIENT
  Age: 17 Year

DRUGS (7)
  1. ETOPOSIDE. [Suspect]
     Active Substance: ETOPOSIDE
     Indication: ACUTE LYMPHOCYTIC LEUKAEMIA
     Dosage: PATIENT RECEIVED A DOSE OF ETOPOSIDE (50 MG/M2)
     Route: 065
  2. VINCRISTINE [Suspect]
     Active Substance: VINCRISTINE
     Indication: ACUTE LYMPHOCYTIC LEUKAEMIA
     Route: 065
  3. CYCLOSPORINE. [Suspect]
     Active Substance: CYCLOSPORINE
     Dosage: WEANED RAPIDLY AND STOPPED OVER 72 HOURS
     Route: 065
  4. RITUXIMAB. [Suspect]
     Active Substance: RITUXIMAB
     Indication: ACUTE LYMPHOCYTIC LEUKAEMIA
     Route: 065
  5. DEXAMETHASONE. [Suspect]
     Active Substance: DEXAMETHASONE
     Indication: ACUTE LYMPHOCYTIC LEUKAEMIA
     Dosage: A COURSE OF DEXAMETHASONE (10 MG/M2 /DAY)
     Route: 065
  6. GANCICLOVIR. [Suspect]
     Active Substance: GANCICLOVIR
     Route: 065
  7. CYCLOPHOSPHAMIDE. [Suspect]
     Active Substance: CYCLOPHOSPHAMIDE
     Indication: ACUTE LYMPHOCYTIC LEUKAEMIA
     Dosage: A DOSE OF CYCLOPHOSPHAMIDE (300 MG/M2)
     Route: 065

REACTIONS (4)
  - Product use in unapproved indication [Unknown]
  - Hepatic function abnormal [Unknown]
  - Renal impairment [Unknown]
  - Multiple organ dysfunction syndrome [Fatal]
